FAERS Safety Report 8613095-6 (Version None)
Quarter: 2012Q3

REPORT INFORMATION
  Report Type: 
  Country: None (occurrence: None)
  Receive Date: 20120822
  Receipt Date: 20120816
  Transmission Date: 20120928
  Serious: No
  Sender: FDA-Public Use
  Company Number: US-PFIZER INC-2012167946

PATIENT
  Age: 87 Year

DRUGS (1)
  1. GABAPENTIN [Suspect]
     Dosage: 300 MG, 1 CAPSULE AT BEDTIME

REACTIONS (4)
  - SOMNOLENCE [None]
  - DRUG INEFFECTIVE [None]
  - HERPES ZOSTER [None]
  - POST HERPETIC NEURALGIA [None]
